FAERS Safety Report 6106233-0 (Version None)
Quarter: 2009Q1

REPORT INFORMATION
  Report Type: 
  Country: None (occurrence: None)
  Receive Date: 20090306
  Receipt Date: 20090225
  Transmission Date: 20090719
  Serious: Yes (Hospitalization)
  Sender: FDA-Public Use
  Company Number: FR-ABBOTT-09P-056-0502023-00

PATIENT
  Age: 49 Year
  Sex: Male

DRUGS (10)
  1. KALETRA [Suspect]
     Indication: HIV INFECTION
     Route: 048
     Dates: start: 20081223
  2. TRUVADA [Concomitant]
     Indication: HIV INFECTION
     Route: 048
     Dates: start: 20081223, end: 20090104
  3. EMTRIVA [Concomitant]
     Indication: HIV INFECTION
     Route: 048
     Dates: start: 20090104
  4. ZECLAR [Concomitant]
     Indication: MYCOBACTERIUM AVIUM COMPLEX INFECTION
     Route: 048
     Dates: start: 20081121
  5. FUZEON [Concomitant]
     Indication: HIV INFECTION
     Route: 058
     Dates: start: 20081223
  6. ANSATIPINE [Concomitant]
     Indication: MYCOBACTERIUM AVIUM COMPLEX INFECTION
     Dates: start: 20081223
  7. MYAMBUTOL [Concomitant]
     Indication: MYCOBACTERIUM AVIUM COMPLEX INFECTION
     Dates: start: 20081121
  8. FOLINORAL [Concomitant]
     Indication: SUPPLEMENTATION THERAPY
     Dates: start: 20081121
  9. BACTRIM [Concomitant]
     Indication: ANTIFUNGAL PROPHYLAXIS
     Dates: start: 20081121
  10. TRIFLUCAN [Concomitant]
     Indication: FUNGAL INFECTION
     Dates: start: 20090102

REACTIONS (9)
  - ANAEMIA [None]
  - CHOLESTASIS [None]
  - CONVULSION [None]
  - CYTOMEGALOVIRUS INFECTION [None]
  - FALL [None]
  - IMMUNE RECONSTITUTION SYNDROME [None]
  - PYREXIA [None]
  - RENAL FAILURE [None]
  - SUBDURAL HAEMATOMA [None]
